FAERS Safety Report 8620233-8 (Version None)
Quarter: 2012Q3

REPORT INFORMATION
  Report Type: 
  Country: None (occurrence: None)
  Receive Date: 20120824
  Receipt Date: 20120817
  Transmission Date: 20120928
  Serious: Yes (Other)
  Sender: FDA-Public Use
  Company Number: PR-ABBOTT-12P-131-0925948-00

PATIENT
  Sex: Female
  Weight: 57.658 kg

DRUGS (3)
  1. HUMIRA [Suspect]
     Dates: start: 20120201
  2. BISMUTH SUBSALICYLATE [Concomitant]
     Indication: GASTRITIS
     Dosage: 1 TABLESPOON AS NEEDED
     Route: 048
  3. HUMIRA [Suspect]
     Indication: RHEUMATOID ARTHRITIS
     Route: 058
     Dates: start: 20111201, end: 20120201

REACTIONS (8)
  - OEDEMA PERIPHERAL [None]
  - PAIN IN EXTREMITY [None]
  - DIARRHOEA [None]
  - FOOD INTOLERANCE [None]
  - PRURITUS [None]
  - VOMITING [None]
  - SKIN ULCER [None]
  - PERIPHERAL VASCULAR DISORDER [None]
